FAERS Safety Report 25272340 (Version 2)
Quarter: 2025Q2

REPORT INFORMATION
  Report Type: Spontaneous
  Country: US (occurrence: US)
  Receive Date: 20250506
  Receipt Date: 20250610
  Transmission Date: 20250717
  Serious: No
  Sender: Kenvue
  Company Number: US-KENVUE-20250409415

PATIENT
  Sex: Male

DRUGS (1)
  1. MENS ROGAINE EXTRA STRENGTH [Suspect]
     Active Substance: MINOXIDIL
     Indication: Alopecia
     Dosage: A LITTLE BIT OVER A CAPFUL, TWICE A DAY
     Route: 061

REACTIONS (5)
  - Hair texture abnormal [Recovered/Resolved]
  - Incorrect product administration duration [Unknown]
  - Overdose [Unknown]
  - Poor quality product administered [Unknown]
  - Product container issue [Unknown]
